FAERS Safety Report 4991197-3 (Version None)
Quarter: 2006Q2

REPORT INFORMATION
  Report Type: 
  Country: None (occurrence: None)
  Receive Date: 20060504
  Receipt Date: 20051221
  Transmission Date: 20061013
  Serious: Yes (Other)
  Sender: FDA-Public Use
  Company Number: US-ROCHE-439612

PATIENT
  Age: 16 Year
  Sex: Female
  Weight: 59 kg

DRUGS (4)
  1. ACCUTANE [Suspect]
     Indication: ACNE
     Dosage: ALTERNATING 40/80MG PER DAY
     Route: 048
     Dates: start: 19941216, end: 19950502
  2. ACCUTANE [Suspect]
     Dosage: ALTERNATING 40/80MG PER DAY
     Route: 048
     Dates: start: 19960726, end: 19961127
  3. ACCUTANE [Suspect]
     Route: 048
     Dates: start: 19971129, end: 19980215
  4. ORTHO TRI-CYCLEN [Concomitant]
     Route: 048

REACTIONS (78)
  - ABDOMINAL DISTENSION [None]
  - ABDOMINAL PAIN [None]
  - ABORTION THREATENED [None]
  - ALANINE AMINOTRANSFERASE INCREASED [None]
  - ALOPECIA [None]
  - ANION GAP DECREASED [None]
  - ANORECTAL DISORDER [None]
  - ARTHRALGIA [None]
  - ASPARTATE AMINOTRANSFERASE INCREASED [None]
  - ASTHENIA [None]
  - AUTOIMMUNE DISORDER [None]
  - BLOOD CREATININE DECREASED [None]
  - BREAST TENDERNESS [None]
  - BULIMIA NERVOSA [None]
  - CHRONIC FATIGUE SYNDROME [None]
  - COLITIS ULCERATIVE [None]
  - CONSTIPATION [None]
  - CONVULSION [None]
  - COUGH [None]
  - CYSTITIS INTERSTITIAL [None]
  - DEPRESSION [None]
  - DERMATITIS CONTACT [None]
  - DEVICE RELATED INFECTION [None]
  - DIARRHOEA [None]
  - DIZZINESS [None]
  - DRUG EXPOSURE DURING PREGNANCY [None]
  - DYSKINESIA [None]
  - DYSPNOEA [None]
  - ELECTROCARDIOGRAM T WAVE INVERSION [None]
  - ERYTHEMA [None]
  - EXTRASYSTOLES [None]
  - FATIGUE [None]
  - FIBROMYALGIA [None]
  - FLATULENCE [None]
  - HAEMATOCHEZIA [None]
  - HAEMORRHOIDS [None]
  - HEADACHE [None]
  - HEARING IMPAIRED [None]
  - HYPERHIDROSIS [None]
  - INFLAMMATORY BOWEL DISEASE [None]
  - INSOMNIA [None]
  - INTESTINAL OBSTRUCTION [None]
  - IUCD COMPLICATION [None]
  - LIMB CRUSHING INJURY [None]
  - LONG QT SYNDROME [None]
  - MELANOCYTIC NAEVUS [None]
  - MUCOUS STOOLS [None]
  - MUSCLE SPASMS [None]
  - MYALGIA [None]
  - NECK INJURY [None]
  - NEUROPATHY [None]
  - PALPITATIONS [None]
  - PHOTOPHOBIA [None]
  - POLYCYSTIC OVARIES [None]
  - POSTNASAL DRIP [None]
  - POSTPARTUM DEPRESSION [None]
  - PREGNANCY [None]
  - PROCTITIS ULCERATIVE [None]
  - PSEUDOPOLYPOSIS [None]
  - RECTAL HAEMORRHAGE [None]
  - RESTLESSNESS [None]
  - SEASONAL ALLERGY [None]
  - SINUS HEADACHE [None]
  - SINUS TACHYCARDIA [None]
  - SKIN PAPILLOMA [None]
  - STRESS [None]
  - SUICIDAL IDEATION [None]
  - SUPRAVENTRICULAR EXTRASYSTOLES [None]
  - SYSTEMIC LUPUS ERYTHEMATOSUS [None]
  - THROMBOSIS [None]
  - UPPER RESPIRATORY TRACT INFECTION [None]
  - URINARY TRACT INFECTION [None]
  - VAGINAL CANDIDIASIS [None]
  - VAGINAL DISCHARGE [None]
  - VAGINAL HAEMORRHAGE [None]
  - VAGINAL INFECTION [None]
  - VAGINITIS BACTERIAL [None]
  - VIRAL PHARYNGITIS [None]
